FAERS Safety Report 5442972-2 (Version None)
Quarter: 2007Q3

REPORT INFORMATION
  Report Type: 
  Country: None (occurrence: None)
  Receive Date: 20070905
  Receipt Date: 20070903
  Transmission Date: 20080115
  Serious: Yes (Hospitalization, Other)
  Sender: FDA-Public Use
  Company Number: GB-BRISTOL-MYERS SQUIBB COMPANY-13895776

PATIENT
  Age: 58 Year
  Sex: Male
  Weight: 67 kg

DRUGS (1)
  1. REYATAZ [Suspect]
     Indication: HIV INFECTION
     Dates: start: 20060320, end: 20070810

REACTIONS (3)
  - NEPHROLITHIASIS [None]
  - PAIN [None]
  - URINARY TRACT INFECTION [None]
